FAERS Safety Report 14098549 (Version 1)
Quarter: 2017Q4

REPORT INFORMATION
  Report Type: Spontaneous
  Country: US (occurrence: US)
  Receive Date: 20171017
  Receipt Date: 20171017
  Transmission Date: 20180321
  Serious: Yes (Other)
  Sender: FDA-Public Use
  Company Number: None

PATIENT
  Age: 26 Year
  Sex: Male
  Weight: 81 kg

DRUGS (3)
  1. CREATINE [Concomitant]
     Active Substance: CREATINE
  2. FISH OIL [Concomitant]
     Active Substance: FISH OIL
  3. MINOXIDIL 5% [Suspect]
     Active Substance: MINOXIDIL
     Indication: OFF LABEL USE
     Dosage: ?          QUANTITY:1 DROP(S);?
     Route: 061
     Dates: start: 20170818, end: 20171016

REACTIONS (6)
  - Libido increased [None]
  - Erectile dysfunction [None]
  - Feeling abnormal [None]
  - Aggression [None]
  - Libido decreased [None]
  - Abnormal behaviour [None]

NARRATIVE: CASE EVENT DATE: 20170920
